FAERS Safety Report 7204802-8 (Version None)
Quarter: 2010Q4

REPORT INFORMATION
  Report Type: 
  Country: None (occurrence: None)
  Receive Date: 20101230
  Receipt Date: 20101227
  Transmission Date: 20110411
  Serious: Yes (Hospitalization, Other)
  Sender: FDA-Public Use
  Company Number: US-AMGEN-USASP2010011935

PATIENT

DRUGS (1)
  1. NPLATE [Suspect]
     Indication: IDIOPATHIC THROMBOCYTOPENIC PURPURA
     Dates: start: 20060101

REACTIONS (4)
  - ALCOHOL USE [None]
  - DRUG DOSE OMISSION [None]
  - HAEMORRHAGE [None]
  - PLATELET COUNT ABNORMAL [None]
